FAERS Safety Report 20004925 (Version 2)
Quarter: 2022Q1

REPORT INFORMATION
  Report Type: Report from Study
  Country: US (occurrence: US)
  Receive Date: 20211027
  Receipt Date: 20220118
  Transmission Date: 20220423
  Serious: Yes (Hospitalization, Other)
  Sender: FDA-Public Use
  Company Number: US-BRISTOL-MYERS SQUIBB COMPANY-BMS-2021-112253

PATIENT
  Age: 49 Year
  Sex: Female
  Weight: 62.3 kg

DRUGS (2)
  1. NIVOLUMAB [Suspect]
     Active Substance: NIVOLUMAB
     Indication: Neoplasm malignant
     Dosage: 480 MILLIGRAM, ONCE
     Route: 042
     Dates: start: 20210205
  2. LUCITANIB [Suspect]
     Active Substance: LUCITANIB
     Indication: Neoplasm malignant
     Dosage: 6 MILLIGRAM, QD (TABLET)
     Route: 048
     Dates: start: 20210205

REACTIONS (1)
  - Enterocolitis infectious [Recovered/Resolved]

NARRATIVE: CASE EVENT DATE: 20211017
